FAERS Safety Report 5397706-7 (Version None)
Quarter: 2007Q3

REPORT INFORMATION
  Report Type: 
  Country: None (occurrence: None)
  Receive Date: 20070726
  Receipt Date: 20070720
  Transmission Date: 20080115
  Serious: Yes (Hospitalization)
  Sender: FDA-Public Use
  Company Number: JP-AVENTIS-200710928JP

PATIENT
  Age: 35 Year
  Sex: Female
  Weight: 51 kg

DRUGS (5)
  1. ALLEGRA [Suspect]
     Route: 048
     Dates: start: 20070213, end: 20070321
  2. MEIACT [Concomitant]
     Route: 048
     Dates: start: 20070317, end: 20070322
  3. SELBEX [Concomitant]
     Route: 048
     Dates: start: 20070317, end: 20070322
  4. PODONIN S [Concomitant]
     Route: 048
     Dates: start: 20070317, end: 20070322
  5. NAUZELIN [Concomitant]
     Route: 048
     Dates: start: 20070317, end: 20070322

REACTIONS (2)
  - JAUNDICE [None]
  - LIVER DISORDER [None]
